FAERS Safety Report 5300183-5 (Version None)
Quarter: 2007Q2

REPORT INFORMATION
  Report Type: 
  Country: None (occurrence: None)
  Receive Date: 20070418
  Receipt Date: 20070409
  Transmission Date: 20071010
  Serious: Yes (Other)
  Sender: FDA-Public Use
  Company Number: HQWYE180110APR07

PATIENT
  Sex: Female
  Weight: 70.37 kg

DRUGS (4)
  1. EFFEXOR XR [Suspect]
     Indication: DEPRESSION
     Dosage: ^2 ORANGE CAPSULES DAILY^
     Route: 048
     Dates: start: 20060401, end: 20070101
  2. EFFEXOR XR [Suspect]
     Dosage: ^WEANED HERSELF OFF BY TAKING 2 ORANGE CAPSULES EVERY OTHER DAY FOR A FEW DAYS^
     Route: 048
     Dates: start: 20070101, end: 20070101
  3. EFFEXOR XR [Suspect]
     Dosage: ^2 ORANGE CAPSULES EVERY 3 DAYS^
     Route: 048
     Dates: start: 20070101, end: 20070101
  4. EFFEXOR XR [Suspect]
     Dosage: ^2 ORANGE CAPSULES EVERY 4 DAYS^
     Route: 048
     Dates: start: 20070101, end: 20070404

REACTIONS (8)
  - DIZZINESS [None]
  - DRUG WITHDRAWAL SYNDROME [None]
  - HEADACHE [None]
  - HOMICIDAL IDEATION [None]
  - MALAISE [None]
  - NAUSEA [None]
  - PAIN [None]
  - UNEVALUABLE EVENT [None]
